FAERS Safety Report 14284960 (Version 1)
Quarter: 2017Q4

REPORT INFORMATION
  Report Type: Report from Study
  Country: None (occurrence: RO)
  Receive Date: 20171214
  Receipt Date: 20171214
  Transmission Date: 20180321
  Serious: Yes (Other)
  Sender: FDA-Public Use
  Company Number: RO-ABBVIE-17K-135-2189410-00

PATIENT
  Age: 61 Year
  Sex: Male

DRUGS (1)
  1. HUMIRA [Suspect]
     Active Substance: ADALIMUMAB
     Indication: PSORIASIS
     Route: 058
     Dates: start: 20110616, end: 20171208

REACTIONS (3)
  - Hepatitis B core antibody positive [Not Recovered/Not Resolved]
  - Hepatitis B surface antibody positive [Not Recovered/Not Resolved]
  - Hepatitis C antibody positive [Not Recovered/Not Resolved]

NARRATIVE: CASE EVENT DATE: 20171208
